FAERS Safety Report 7554647-4 (Version None)
Quarter: 2011Q2

REPORT INFORMATION
  Report Type: 
  Country: None (occurrence: None)
  Receive Date: 20110617
  Receipt Date: 20110613
  Transmission Date: 20111010
  Serious: Yes (Other)
  Sender: FDA-Public Use
  Company Number: GB-PFIZER INC-2011081166

PATIENT
  Age: 52 Year
  Sex: Male
  Weight: 80 kg

DRUGS (11)
  1. REVATIO [Suspect]
     Dosage: 1.8 ML, PER HOUR
     Route: 042
  2. REVATIO [Suspect]
     Dosage: 2.0 ML, PER HOUR
     Route: 042
     Dates: start: 20110402, end: 20110402
  3. MORPHINE [Concomitant]
  4. REVATIO [Suspect]
     Dosage: 1.6 ML, PER HOUR
     Route: 042
  5. NOREPINEPHRINE BITARTRATE [Concomitant]
     Indication: VASOPRESSIVE THERAPY
     Dosage: UNK
  6. MIDAZOLAM [Concomitant]
  7. REVATIO [Suspect]
     Indication: PULMONARY EMBOLISM
     Dosage: 1 ML, PER HOUR
     Route: 042
     Dates: start: 20110331
  8. OXYGEN [Concomitant]
     Indication: HYPERCAPNIA
     Dosage: UNK
     Route: 055
  9. ADRENALIN IN OIL INJ [Concomitant]
     Indication: VASOPRESSIVE THERAPY
     Dosage: UNK
  10. REVATIO [Suspect]
     Indication: PULMONARY HYPERTENSION
     Dosage: UNK
     Route: 045
     Dates: start: 20110331
  11. UROKINASE [Concomitant]

REACTIONS (1)
  - HYPOTENSION [None]
